FAERS Safety Report 23885457 (Version 1)
Quarter: 2024Q2

REPORT INFORMATION
  Report Type: Spontaneous
  Country: DE (occurrence: DE)
  Receive Date: 20240522
  Receipt Date: 20240522
  Transmission Date: 20240715
  Serious: Yes (Death, Hospitalization)
  Sender: FDA-Public Use
  Company Number: DE-DEAQVIDAP-20240028

PATIENT
  Age: 80 Year
  Sex: Female

DRUGS (3)
  1. AZATHIOPRINE [Suspect]
     Active Substance: AZATHIOPRINE
     Indication: Autoimmune hepatitis
     Dosage: 15 MG/KG, BW
     Route: 065
     Dates: start: 202107, end: 2021
  2. BUDESONIDE [Suspect]
     Active Substance: BUDESONIDE
     Indication: Autoimmune hepatitis
     Dosage: 3X3MG/DAY
     Route: 065
     Dates: start: 2021
  3. PREDNISOLONE [Concomitant]
     Active Substance: PREDNISOLONE
     Indication: Autoimmune hepatitis
     Dosage: INITIAL DOSAGE
     Route: 065
     Dates: start: 202107, end: 2021

REACTIONS (4)
  - Nocardiosis [Fatal]
  - Sepsis [Fatal]
  - Bronchopulmonary aspergillosis [Unknown]
  - Herpes simplex pneumonia [Unknown]

NARRATIVE: CASE EVENT DATE: 20210101
